FAERS Safety Report 25185904 (Version 1)
Quarter: 2025Q2

REPORT INFORMATION
  Report Type: Spontaneous
  Country: KR (occurrence: KR)
  Receive Date: 20250410
  Receipt Date: 20250410
  Transmission Date: 20250717
  Serious: Yes (Other)
  Sender: NOVARTIS
  Company Number: KR-002147023-NVSC2025KR056874

PATIENT
  Age: 47 Year
  Sex: Male

DRUGS (1)
  1. KYMRIAH [Suspect]
     Active Substance: TISAGENLECLEUCEL
     Indication: Diffuse large B-cell lymphoma
     Route: 042
     Dates: start: 202412, end: 202412

REACTIONS (1)
  - Spinal cord neoplasm [Unknown]

NARRATIVE: CASE EVENT DATE: 20250101
